FAERS Safety Report 19578813 (Version 3)
Quarter: 2021Q3

REPORT INFORMATION
  Report Type: Spontaneous
  Country: US (occurrence: US)
  Receive Date: 20210719
  Receipt Date: 20210728
  Transmission Date: 20211014
  Serious: Yes (Life-Threatening, Other)
  Sender: FDA-Public Use
  Company Number: US-PFIZER INC-2021843916

PATIENT
  Age: 81 Year
  Sex: Female

DRUGS (1)
  1. LATANOPROST. [Suspect]
     Active Substance: LATANOPROST
     Indication: GLAUCOMA
     Dosage: 1 DROP, 1X/DAY (1 DROP EACH EYE AT NIGHT)
     Route: 047
     Dates: start: 20210309

REACTIONS (14)
  - Asthma [Unknown]
  - Gait disturbance [Unknown]
  - Dyspnoea [Unknown]
  - Productive cough [Not Recovered/Not Resolved]
  - Eyelash hyperpigmentation [Recovering/Resolving]
  - Sinusitis [Recovering/Resolving]
  - Influenza [Unknown]
  - Bronchospasm [Recovering/Resolving]
  - Suspected COVID-19 [Recovering/Resolving]
  - Feeling abnormal [Not Recovered/Not Resolved]
  - Blood pressure systolic increased [Recovering/Resolving]
  - Upper respiratory tract infection [Recovering/Resolving]
  - Irritability [Unknown]
  - Fatigue [Unknown]
